FAERS Safety Report 12197596 (Version 2)
Quarter: 2016Q2

REPORT INFORMATION
  Report Type: Spontaneous
  Country: US (occurrence: US)
  Receive Date: 20160322
  Receipt Date: 20160628
  Transmission Date: 20160815
  Serious: Yes (Hospitalization, Other)
  Sender: FDA-Public Use
  Company Number: US-ASTRAZENECA-2016SE27768

PATIENT

DRUGS (1)
  1. TAGRISSO [Suspect]
     Active Substance: OSIMERTINIB
     Indication: NEOPLASM MALIGNANT
     Route: 048

REACTIONS (2)
  - Pleural effusion [Recovering/Resolving]
  - Pericardial effusion [Recovering/Resolving]
